FAERS Safety Report 9254401 (Version 1)
Quarter: 2013Q2

REPORT INFORMATION
  Report Type: Spontaneous
  Country: US (occurrence: None)
  Receive Date: 20130422
  Receipt Date: 20130422
  Transmission Date: 20140414
  Serious: Yes (Other)
  Sender: FDA-Public Use
  Company Number: JPI-P-031137

PATIENT
  Age: 56 Year
  Sex: Male

DRUGS (1)
  1. XYREM (500 MILLIGRAM/MILLILITERS, SOLUTION ) (SODIUM OXYBATE) [Suspect]
     Indication: CATAPLEXY
     Dosage: 3GM (1.5GM, 2 IN 1 D) ORAL
     Route: 048
     Dates: start: 20090615

REACTIONS (3)
  - Fall [None]
  - Drug withdrawal syndrome [None]
  - Head injury [None]
